FAERS Safety Report 4402793-6 (Version None)
Quarter: 2004Q3

REPORT INFORMATION
  Report Type: 
  Country: None (occurrence: None)
  Receive Date: 20040721
  Receipt Date: 20031219
  Transmission Date: 20050211
  Serious: No
  Sender: FDA-Public Use
  Company Number: US-BRISTOL-MYERS SQUIBB COMPANY-12462149

PATIENT
  Age: 44 Year
  Sex: Male
  Weight: 63 kg

DRUGS (6)
  1. ZERIT [Suspect]
     Indication: HIV INFECTION
     Route: 048
     Dates: start: 20000101
  2. EPIVIR [Concomitant]
  3. KALETRA [Concomitant]
  4. DIFLUCAN [Concomitant]
  5. FLONASE [Concomitant]
  6. LORAZEPAM [Concomitant]

REACTIONS (7)
  - BALANCE DISORDER [None]
  - HEADACHE [None]
  - INSOMNIA [None]
  - LIPOHYPERTROPHY [None]
  - LOCAL SWELLING [None]
  - MEMORY IMPAIRMENT [None]
  - NECK PAIN [None]
